FAERS Safety Report 8421350-8 (Version None)
Quarter: 2012Q2

REPORT INFORMATION
  Report Type: 
  Country: None (occurrence: None)
  Receive Date: 20120608
  Receipt Date: 20120601
  Transmission Date: 20120825
  Serious: Yes (Other)
  Sender: FDA-Public Use
  Company Number: PHHY2012BR047784

PATIENT
  Sex: Male

DRUGS (1)
  1. FORMOTEROL FUMARATE [Suspect]
     Dosage: UNK UKN, UNK

REACTIONS (6)
  - CARDIAC FAILURE CONGESTIVE [None]
  - GANGRENE [None]
  - DEPRESSION [None]
  - CARDIAC DISORDER [None]
  - INFECTION [None]
  - POOR PERIPHERAL CIRCULATION [None]
